FAERS Safety Report 9297447 (Version 1)
Quarter: 2013Q2

REPORT INFORMATION
  Report Type: Spontaneous
  Country: US (occurrence: None)
  Receive Date: 20130517
  Receipt Date: 20130517
  Transmission Date: 20140414
  Serious: Yes (Other)
  Sender: FDA-Public Use
  Company Number: None

PATIENT
  Sex: Male

DRUGS (1)
  1. BENEFIX [Suspect]
     Dosage: 2000, Q 2 WEEKS
     Route: 040
     Dates: start: 20120801, end: 20130501

REACTIONS (5)
  - Fatigue [None]
  - Nasopharyngitis [None]
  - Chills [None]
  - Dizziness [None]
  - Somnolence [None]
